FAERS Safety Report 5853079-4 (Version None)
Quarter: 2008Q3

REPORT INFORMATION
  Report Type: 
  Country: None (occurrence: None)
  Receive Date: 20080821
  Receipt Date: 20080807
  Transmission Date: 20090109
  Serious: Yes (Other)
  Sender: FDA-Public Use
  Company Number: IT-AMGEN-UK300027

PATIENT
  Sex: Male

DRUGS (1)
  1. PALIFERMIN - BLINDED [Suspect]
     Indication: MUCOSAL INFLAMMATION
     Route: 042
     Dates: start: 20080306, end: 20080314

REACTIONS (1)
  - MALIGNANT NEOPLASM PROGRESSION [None]
